FAERS Safety Report 24303007 (Version 1)
Quarter: 2024Q3

REPORT INFORMATION
  Report Type: Spontaneous
  Country: US (occurrence: None)
  Receive Date: 20240909
  Receipt Date: 20240909
  Transmission Date: 20241017
  Serious: No
  Sender: Public
  Company Number: None

PATIENT
  Age: 37 Year
  Sex: Female
  Weight: 68.4 kg

DRUGS (1)
  1. NUCALA [Suspect]
     Active Substance: MEPOLIZUMAB
     Dates: start: 20240722, end: 20240819

REACTIONS (10)
  - Polyp [None]
  - Eczema [None]
  - Myalgia [None]
  - Arthralgia [None]
  - Dry skin [None]
  - Skin exfoliation [None]
  - Alopecia [None]
  - Oropharyngeal pain [None]
  - Disease recurrence [None]
  - Eosinophilic oesophagitis [None]
